FAERS Safety Report 7943906-9 (Version None)
Quarter: 2011Q4

REPORT INFORMATION
  Report Type: 
  Country: None (occurrence: None)
  Receive Date: 20111128
  Receipt Date: 20111117
  Transmission Date: 20120403
  Serious: Yes (Hospitalization, Disabling, Other)
  Sender: FDA-Public Use
  Company Number: US-ASTRAZENECA-2010SE18549

PATIENT
  Age: 89 Year
  Sex: Female
  Weight: 67.1 kg

DRUGS (10)
  1. TOPROL-XL [Suspect]
     Indication: CARDIAC FAILURE CONGESTIVE
     Route: 048
  2. TOPROL-XL [Suspect]
     Indication: ATRIAL FIBRILLATION
     Route: 048
  3. ASPIRIN [Concomitant]
  4. ZESTRIL [Suspect]
     Route: 048
  5. TOPROL-XL [Suspect]
     Route: 048
  6. TAMOXIFEN CITRATE [Suspect]
     Indication: NEOPLASM MALIGNANT
     Route: 048
  7. COUMADIN [Concomitant]
  8. LASIX [Concomitant]
  9. TOPROL-XL [Suspect]
     Route: 048
  10. THYROXIN [Concomitant]

REACTIONS (28)
  - HEARING IMPAIRED [None]
  - FUNCTIONAL GASTROINTESTINAL DISORDER [None]
  - CATARACT [None]
  - CARDIAC FAILURE CONGESTIVE [None]
  - INTERVERTEBRAL DISC PROTRUSION [None]
  - PLEURAL EFFUSION [None]
  - EYELID DISORDER [None]
  - ANGINA PECTORIS [None]
  - BREAST CANCER [None]
  - LYMPHOMA [None]
  - BLINDNESS UNILATERAL [None]
  - PAIN IN EXTREMITY [None]
  - ABASIA [None]
  - PAIN [None]
  - MEMORY IMPAIRMENT [None]
  - ARRHYTHMIA [None]
  - ACCIDENT AT HOME [None]
  - HYPOAESTHESIA [None]
  - HEART RATE DECREASED [None]
  - STRESS URINARY INCONTINENCE [None]
  - DEVICE DISLOCATION [None]
  - CARDIAC DISORDER [None]
  - DYSPNOEA [None]
  - VISUAL ACUITY REDUCED [None]
  - EYE INFECTION [None]
  - URINARY INCONTINENCE [None]
  - OEDEMA PERIPHERAL [None]
  - DIARRHOEA [None]
